FAERS Safety Report 10610626 (Version 3)
Quarter: 2015Q1

REPORT INFORMATION
  Report Type: Spontaneous
  Country: JP (occurrence: JP)
  Receive Date: 20141126
  Receipt Date: 20150101
  Transmission Date: 20150720
  Serious: Yes (Hospitalization)
  Sender: FDA-Public Use
  Company Number: PHHY2014JP147870

PATIENT
  Age: 81 Year
  Sex: Female

DRUGS (6)
  1. VOLTAREN [Suspect]
     Active Substance: DICLOFENAC SODIUM
     Indication: BACK PAIN
     Route: 048
  2. CETIRIZINE [Suspect]
     Active Substance: CETIRIZINE HYDROCHLORIDE
     Indication: PRODUCT USED FOR UNKNOWN INDICATION
     Route: 065
  3. LIMAPROST ALFADEX [Suspect]
     Active Substance: LIMAPROST
     Indication: BACK PAIN
     Route: 048
     Dates: start: 201108
  4. CELECOXIB. [Suspect]
     Active Substance: CELECOXIB
     Indication: BACK PAIN
     Route: 048
     Dates: start: 201108
  5. LAFUTIDINE [Suspect]
     Active Substance: LAFUTIDINE
     Indication: BACK PAIN
     Route: 048
     Dates: start: 201108
  6. ACETAMINOPHEN. [Suspect]
     Active Substance: ACETAMINOPHEN
     Indication: PRODUCT USED FOR UNKNOWN INDICATION
     Route: 065

REACTIONS (10)
  - Excoriation [Recovering/Resolving]
  - Blister [Recovering/Resolving]
  - Pyrexia [Recovering/Resolving]
  - Skin erosion [Recovered/Resolved]
  - Lymphocytic infiltration [Recovering/Resolving]
  - Toxic epidermal necrolysis [Recovering/Resolving]
  - Purpura [Recovering/Resolving]
  - Drug eruption [Recovering/Resolving]
  - Erythema [Recovering/Resolving]
  - Haemorrhage [Unknown]
